FAERS Safety Report 8633656 (Version 5)
Quarter: 2012Q4

REPORT INFORMATION
  Report Type: 
  Country: GB (occurrence: GB)
  Receive Date: 20120625
  Receipt Date: 20121012
  Transmission Date: 20130627
  Serious: Yes (Death, Other)
  Sender: FDA-Public Use
  Company Number: GB-TEVA-344568ISR

PATIENT
  Age: 40 Year
  Sex: Male
  Weight: 104 kg

DRUGS (19)
  1. CLARITHROMYCIN [Suspect]
     Indication: LOWER RESPIRATORY TRACT INFECTION
     Dosage: 1000 Milligram Daily;
     Route: 048
     Dates: start: 20111028
  2. CLARITHROMYCIN [Interacting]
     Indication: PHARYNGITIS
  3. METHADONE [Interacting]
     Indication: ABDOMINAL PAIN
     Dosage: Indication: Pain control
     Route: 048
     Dates: start: 20111025, end: 20111026
  4. METHADONE [Interacting]
     Indication: CROHN^S DISEASE
     Dosage: Indication: Pain control
     Route: 048
     Dates: start: 20111027, end: 20111027
  5. METHADONE [Interacting]
     Dosage: Indication: Pain control
     Route: 048
     Dates: start: 20111028, end: 20111030
  6. HUMIRA [Suspect]
     Indication: CROHN^S DISEASE
     Dosage: continued
     Route: 030
     Dates: start: 20111005
  7. ORAMORPH [Concomitant]
     Indication: PAIN
     Route: 048
     Dates: start: 20110707, end: 20111025
  8. ORAMORPH [Concomitant]
     Indication: CROHN^S DISEASE
  9. ADCAL-D3 [Concomitant]
     Indication: CROHN^S DISEASE
     Dosage: Continued
     Route: 048
     Dates: start: 20110808
  10. ADCAL-D3 [Concomitant]
     Indication: BONE DISORDER
  11. LANSOPRAZOLE [Concomitant]
     Indication: GASTRITIS
     Route: 048
     Dates: start: 20070219
  12. LANSOPRAZOLE [Concomitant]
     Indication: DYSPEPSIA
  13. DIAZEPAM [Concomitant]
     Indication: ANXIETY
     Route: 048
     Dates: start: 20111019
  14. VENTOLIN [Concomitant]
  15. MULTIVITAMIN [Concomitant]
     Indication: NUTRITIONAL SUPPORT
     Dates: start: 20110623
  16. PARACETAMOL [Concomitant]
     Indication: PAIN
     Dosage: 1 Gram Daily;
  17. HYDROXOCOBALAMIN [Concomitant]
     Indication: VITAMIN D DEFICIENCY
     Dosage: 1 Dosage forms Daily;
  18. MST CONTINUS [Concomitant]
     Indication: ABDOMINAL PAIN
     Dosage: 20 Milligram Daily; Divided
     Route: 048
     Dates: start: 201102
  19. NO DRUG NAME [Concomitant]

REACTIONS (36)
  - Toxicity to various agents [Fatal]
  - Diffuse alveolar damage [Fatal]
  - Crohn^s disease [Fatal]
  - Toxicity to various agents [Fatal]
  - Potentiating drug interaction [Fatal]
  - Inhibitory drug interaction [Not Recovered/Not Resolved]
  - Heart rate increased [Unknown]
  - Crohn^s disease [Unknown]
  - Blood urine [Unknown]
  - Pyrexia [Not Recovered/Not Resolved]
  - Influenza [Unknown]
  - Pneumonitis [Unknown]
  - Erythema [Unknown]
  - Dysarthria [Unknown]
  - Malaise [Unknown]
  - Oropharyngeal pain [Unknown]
  - Headache [Unknown]
  - Vomiting [Unknown]
  - Hiccups [Unknown]
  - Dysuria [Unknown]
  - C-reactive protein increased [Unknown]
  - White blood cell count increased [Unknown]
  - Hyperhidrosis [Unknown]
  - Tremor [Unknown]
  - Rectal haemorrhage [Unknown]
  - Pain [Unknown]
  - Confusional state [Unknown]
  - Aggression [Unknown]
  - Immunosuppression [Unknown]
  - Incorrect dose administered [Unknown]
  - Diplopia [Unknown]
  - Vision blurred [Unknown]
  - Chest pain [Unknown]
  - Dizziness [Unknown]
  - Adverse drug reaction [Unknown]
  - Inflammatory marker increased [Unknown]
